FAERS Safety Report 5946195-X (Version None)
Quarter: 2008Q4

REPORT INFORMATION
  Report Type: 
  Country: None (occurrence: None)
  Receive Date: 20081110
  Receipt Date: 20081104
  Transmission Date: 20090506
  Serious: Yes (Hospitalization)
  Sender: FDA-Public Use
  Company Number: FR-JNJFOC-20081100721

PATIENT
  Age: 74 Year
  Sex: Female

DRUGS (2)
  1. TANANIC [Suspect]
     Indication: BRONCHITIS
     Route: 065
  2. ROCEPHIN [Suspect]
     Indication: BRONCHITIS
     Route: 042

REACTIONS (2)
  - C-REACTIVE PROTEIN INCREASED [None]
  - INFLAMMATION [None]
